FAERS Safety Report 18462172 (Version 1)
Quarter: 2020Q4

REPORT INFORMATION
  Report Type: Spontaneous
  Country: US (occurrence: US)
  Receive Date: 20201104
  Receipt Date: 20201104
  Transmission Date: 20210114
  Serious: Yes (Other)
  Sender: FDA-Public Use
  Company Number: US-TEVA-2020-US-1844636

PATIENT
  Age: 50 Year
  Sex: Male

DRUGS (4)
  1. TRAZODONE [Suspect]
     Active Substance: TRAZODONE HYDROCHLORIDE
     Route: 065
     Dates: start: 1997
  2. NEFAZODONE [Suspect]
     Active Substance: NEFAZODONE
     Indication: ANXIETY
  3. NEFAZODONE [Suspect]
     Active Substance: NEFAZODONE
     Indication: MAJOR DEPRESSION
     Route: 065
     Dates: start: 1996
  4. NEFAZODONE [Suspect]
     Active Substance: NEFAZODONE
     Indication: POST-TRAUMATIC STRESS DISORDER

REACTIONS (5)
  - Drug dependence [Unknown]
  - Dizziness [Unknown]
  - Mouth breathing [Unknown]
  - Feeling jittery [Unknown]
  - Nasal congestion [Unknown]

NARRATIVE: CASE EVENT DATE: 1996
